FAERS Safety Report 9659974 (Version 2)
Quarter: 2013Q4

REPORT INFORMATION
  Report Type: Spontaneous
  Country: US (occurrence: US)
  Receive Date: 20131031
  Receipt Date: 20131101
  Transmission Date: 20140711
  Serious: No
  Sender: FDA-Public Use
  Company Number: US-PFIZER INC-2013311563

PATIENT
  Age: 67 Year
  Sex: Female

DRUGS (1)
  1. ATORVASTATIN CALCIUM [Suspect]
     Indication: DYSLIPIDAEMIA
     Dosage: UNK

REACTIONS (1)
  - Pain in extremity [Unknown]
